FAERS Safety Report 8436788-2 (Version None)
Quarter: 2012Q2

REPORT INFORMATION
  Report Type: 
  Country: None (occurrence: None)
  Receive Date: 20120614
  Receipt Date: 20120606
  Transmission Date: 20120825
  Serious: Yes (Other)
  Sender: FDA-Public Use
  Company Number: US-ALEXION-A201200952

PATIENT
  Age: 11 Year
  Sex: Male
  Weight: 35 kg

DRUGS (8)
  1. SOLIRIS [Suspect]
     Indication: GLOMERULONEPHRITIS
     Dosage: 600 MG, QW
     Route: 042
     Dates: start: 20120420
  2. HYDROCORTISONE [Concomitant]
     Dosage: UNK
  3. VITAMIN D [Concomitant]
     Indication: GLOMERULONEPHROPATHY
     Dosage: UNK
  4. LASIX [Concomitant]
     Dosage: UNK
  5. METOLAZONE [Concomitant]
     Dosage: UNK
  6. SUPLENA [Concomitant]
     Dosage: UNK
  7. FERROUS SULFATE TAB [Concomitant]
     Dosage: UNK
  8. LOVENOX [Concomitant]
     Dosage: UNK

REACTIONS (4)
  - DEVICE RELATED INFECTION [None]
  - CLOSTRIDIAL INFECTION [None]
  - ESCHERICHIA INFECTION [None]
  - COLITIS [None]
